FAERS Safety Report 10436476 (Version 1)
Quarter: 2014Q3

REPORT INFORMATION
  Report Type: Spontaneous
  Country: US (occurrence: US)
  Receive Date: 20140908
  Receipt Date: 20140908
  Transmission Date: 20150326
  Serious: Yes (Hospitalization)
  Sender: FDA-Public Use
  Company Number: US-BRISTOL-MYERS SQUIBB COMPANY-19480730

PATIENT
  Age: 32 Year
  Sex: Male

DRUGS (2)
  1. COPAXONE [Suspect]
     Active Substance: GLATIRAMER ACETATE
     Indication: MULTIPLE SCLEROSIS
     Dosage: INJ
     Dates: start: 20100306
  2. ABILIFY [Suspect]
     Active Substance: ARIPIPRAZOLE
     Dates: end: 201309

REACTIONS (4)
  - Headache [Unknown]
  - Insomnia [Unknown]
  - Dyskinesia [Unknown]
  - Heart rate increased [Unknown]

NARRATIVE: CASE EVENT DATE: 20130901
